FAERS Safety Report 13582390 (Version 1)
Quarter: 2017Q2

REPORT INFORMATION
  Report Type: Spontaneous
  Country: FR (occurrence: FR)
  Receive Date: 20170525
  Receipt Date: 20170525
  Transmission Date: 20170830
  Serious: Yes (Hospitalization)
  Sender: FDA-Public Use
  Company Number: FR-NAPPMUNDI-GBR-2017-0045477

PATIENT
  Age: 48 Year
  Sex: Male

DRUGS (9)
  1. OXYNORM [Suspect]
     Active Substance: OXYCODONE HYDROCHLORIDE
     Indication: PAIN
     Dosage: 40 MG, PRN
     Route: 065
     Dates: start: 201704
  2. LASILIX                            /00032601/ [Concomitant]
     Active Substance: FUROSEMIDE
  3. LYRICA [Concomitant]
     Active Substance: PREGABALIN
  4. INEXIUM                            /01479302/ [Concomitant]
     Active Substance: ESOMEPRAZOLE MAGNESIUM
  5. TERCIAN                            /00759301/ [Concomitant]
     Active Substance: CYAMEMAZINE
  6. VALIUM [Concomitant]
     Active Substance: DIAZEPAM
     Dosage: UNK
  7. OXYCONTIN [Suspect]
     Active Substance: OXYCODONE HYDROCHLORIDE
     Indication: PAIN
     Dosage: 200 MG, DAILY
     Route: 065
     Dates: start: 201704
  8. BISOPROLOL [Concomitant]
     Active Substance: BISOPROLOL
  9. SPECIAFOLDINE [Concomitant]
     Active Substance: FOLIC ACID

REACTIONS (2)
  - Pneumonia aspiration [Recovered/Resolved]
  - Confusional state [Recovered/Resolved]

NARRATIVE: CASE EVENT DATE: 20170422
